FAERS Safety Report 21823953 (Version 7)
Quarter: 2023Q1

REPORT INFORMATION
  Report Type: Report from Study
  Country: US (occurrence: US)
  Receive Date: 20230105
  Receipt Date: 20230309
  Transmission Date: 20230418
  Serious: Yes (Hospitalization, Other)
  Sender: FDA-Public Use
  Company Number: US-XERIS PHARMACEUTICALS-2022XER00010

PATIENT
  Sex: Female
  Weight: 62.132 kg

DRUGS (20)
  1. KEVEYIS [Suspect]
     Active Substance: DICHLORPHENAMIDE
     Indication: Paralysis
     Dosage: ONE AND 1/2 TABLETS (75 MG), 2X/DAY AS PRESCRIBED
     Route: 048
     Dates: start: 2017
  2. KEVEYIS [Suspect]
     Active Substance: DICHLORPHENAMIDE
     Dosage: ONE AND 1/2 TABLETS (75 MG), 2X/DAY AS PRESCRIBED
     Route: 048
  3. KEVEYIS [Suspect]
     Active Substance: DICHLORPHENAMIDE
     Dosage: ONE AND 1/2 TABLETS (75 MG), 2X/DAY AS PRESCRIBED
     Route: 048
  4. KEVEYIS [Suspect]
     Active Substance: DICHLORPHENAMIDE
     Dosage: HIGHER DOSE
  5. KEVEYIS [Suspect]
     Active Substance: DICHLORPHENAMIDE
     Dosage: 1 AND 1/2 TABLETS (75 MG), 2X/DAY
     Route: 048
  6. KEVEYIS [Suspect]
     Active Substance: DICHLORPHENAMIDE
     Dosage: 1.5 TABLETS (75 MG), 1X/DAY IN THE MORNING
     Route: 048
     Dates: start: 2022, end: 202210
  7. KEVEYIS [Suspect]
     Active Substance: DICHLORPHENAMIDE
     Dosage: 2 TABLETS (100 MG), 1X/DAY IN THE EVENING
     Route: 048
     Dates: start: 2022, end: 202210
  8. KEVEYIS [Suspect]
     Active Substance: DICHLORPHENAMIDE
     Dosage: 2 TABLETS (100 MG), 2X/DAY
     Route: 048
     Dates: start: 202210
  9. KEVEYIS [Suspect]
     Active Substance: DICHLORPHENAMIDE
     Dosage: 2 TABLETS (100 MG), 2X/DAY
     Route: 048
  10. PFIZER-BIONTECH COVID-19 VACCINE [Suspect]
     Active Substance: TOZINAMERAN
     Dosage: ADULT DOSE, FIRST DOSE, UPPER LEFT SHOULDER, ONCE
     Dates: start: 20220106, end: 20220106
  11. KETAMINE [Suspect]
     Active Substance: KETAMINE
     Dosage: UNK
  12. MIDODRINE [Suspect]
     Active Substance: MIDODRINE
     Dosage: UNK
  13. TRYPTOPHAN [Suspect]
     Active Substance: TRYPTOPHAN
     Dosage: UNK
     Dates: start: 2022, end: 20220918
  14. TYROSINE [Suspect]
     Active Substance: TYROSINE
     Dosage: UNK
  15. EFFER-K UNFLAVORED [Suspect]
     Active Substance: POTASSIUM BICARBONATE
     Dosage: 40-60 MEQ MIXED IN LIQUIDS, 5 TIMES AS NEEDED
  16. EFFER-K UNFLAVORED [Suspect]
     Active Substance: POTASSIUM BICARBONATE
     Dosage: 70 MEQ
     Dates: start: 20220106, end: 20220106
  17. EFFER-K UNFLAVORED [Suspect]
     Active Substance: POTASSIUM BICARBONATE
     Dosage: UNK
  18. NURTEC ODT [Suspect]
     Active Substance: RIMEGEPANT SULFATE
     Dosage: UNK
  19. ^DPLA^ [Concomitant]
  20. PYRIDOSTIGMINE BROMIDE EXTENDED RELEASE [Concomitant]
     Active Substance: PYRIDOSTIGMINE BROMIDE
     Dosage: 180 MG
     Dates: start: 2014

REACTIONS (93)
  - Suicidal ideation [Unknown]
  - Hospitalisation [Recovered/Resolved]
  - Electrocardiogram T wave inversion [Not Recovered/Not Resolved]
  - Loss of consciousness [Not Recovered/Not Resolved]
  - Dehydration [Recovered/Resolved]
  - Aphasia [Recovered/Resolved]
  - Dysarthria [Recovered/Resolved]
  - Disorientation [Recovered/Resolved]
  - Muscle rupture [Recovering/Resolving]
  - Pain [Unknown]
  - Gait inability [Unknown]
  - Syncope [Recovered/Resolved]
  - Fall [Recovered/Resolved]
  - Hypokalaemia [Unknown]
  - Headache [Recovering/Resolving]
  - Pain in extremity [Unknown]
  - Gait disturbance [Unknown]
  - Asthenia [Unknown]
  - Middle insomnia [Recovering/Resolving]
  - Wound [Recovered/Resolved]
  - Visual impairment [Recovered/Resolved]
  - Feeling abnormal [Unknown]
  - Fear [Unknown]
  - Diplopia [Not Recovered/Not Resolved]
  - Altered visual depth perception [Unknown]
  - Hypoglycaemia [Recovered/Resolved]
  - Stress [Recovering/Resolving]
  - Blood cholesterol increased [Unknown]
  - Hypophagia [Unknown]
  - Vomiting [Recovering/Resolving]
  - General physical health deterioration [Not Recovered/Not Resolved]
  - Gastrointestinal viral infection [Not Recovered/Not Resolved]
  - Ultrasound scan abnormal [Not Recovered/Not Resolved]
  - Swelling face [Unknown]
  - Dysphonia [Recovered/Resolved]
  - Migraine [Recovering/Resolving]
  - Gastric infection [Not Recovered/Not Resolved]
  - Concussion [Unknown]
  - Abdominal pain upper [Unknown]
  - Limb injury [Not Recovered/Not Resolved]
  - Joint range of motion decreased [Not Recovered/Not Resolved]
  - Hypersomnia [Not Recovered/Not Resolved]
  - Decreased appetite [Recovered/Resolved]
  - Ear pain [Unknown]
  - Blindness [Recovered/Resolved]
  - Musculoskeletal disorder [Unknown]
  - Depressed mood [Recovering/Resolving]
  - Arthropod bite [Recovering/Resolving]
  - Agitation [Unknown]
  - Irritability [Unknown]
  - Insomnia [Recovered/Resolved]
  - Urticaria [Recovering/Resolving]
  - Panic reaction [Unknown]
  - Tachyphrenia [Recovering/Resolving]
  - Muscular weakness [Unknown]
  - Depression [Recovering/Resolving]
  - Euphoric mood [Recovering/Resolving]
  - Amino acid level increased [Unknown]
  - Sensitivity to weather change [Unknown]
  - Cardiac disorder [Unknown]
  - Heart rate decreased [Unknown]
  - Blood potassium increased [Unknown]
  - Exaggerated startle response [Recovering/Resolving]
  - Skin warm [Unknown]
  - Dry skin [Unknown]
  - Butterfly rash [Unknown]
  - Treatment noncompliance [Recovered/Resolved]
  - Hypersensitivity [Unknown]
  - Malnutrition [Recovering/Resolving]
  - Laboratory test abnormal [Recovering/Resolving]
  - Blood potassium abnormal [Recovering/Resolving]
  - Reaction to food additive [Recovered/Resolved]
  - Injury [Recovered/Resolved]
  - Gastroenteritis viral [Recovering/Resolving]
  - Pyrexia [Recovering/Resolving]
  - Vomiting projectile [Recovering/Resolving]
  - Dyspnoea [Unknown]
  - Burning sensation [Recovering/Resolving]
  - Paralysis [Recovered/Resolved]
  - Paraesthesia [Recovering/Resolving]
  - Dizziness [Unknown]
  - Hypoaesthesia [Recovered/Resolved]
  - Fatigue [Unknown]
  - Diarrhoea [Recovering/Resolving]
  - Muscle spasms [Recovered/Resolved]
  - Taste disorder [Recovering/Resolving]
  - Nausea [Recovering/Resolving]
  - Malaise [Recovered/Resolved]
  - Rash [Unknown]
  - Amnesia [Not Recovered/Not Resolved]
  - Dysgeusia [Recovering/Resolving]
  - Unevaluable event [Unknown]
  - Product dose omission issue [Recovered/Resolved]

NARRATIVE: CASE EVENT DATE: 20210101
